FAERS Safety Report 7038590-5 (Version None)
Quarter: 2010Q4

REPORT INFORMATION
  Report Type: 
  Country: None (occurrence: None)
  Receive Date: 20101011
  Receipt Date: 20100630
  Transmission Date: 20110411
  Serious: No
  Sender: FDA-Public Use
  Company Number: US-PFIZER INC-2010082389

PATIENT
  Sex: Female

DRUGS (7)
  1. NEURONTIN [Suspect]
     Indication: TRAUMATIC BRAIN INJURY
     Dosage: UNK
  2. PRISTIQ [Suspect]
     Indication: DEPRESSION
     Dosage: UNK
     Dates: start: 20100601
  3. PRISTIQ [Suspect]
     Indication: ASTHENIA
  4. EFFEXOR XR [Suspect]
     Indication: DEPRESSION
     Dosage: UNK
  5. EFFEXOR XR [Suspect]
     Indication: ASTHENIA
  6. LEXAPRO [Suspect]
     Indication: DEPRESSION
     Dosage: UNK
  7. LEXAPRO [Suspect]
     Indication: ASTHENIA

REACTIONS (4)
  - DIZZINESS [None]
  - FATIGUE [None]
  - SOMNOLENCE [None]
  - WEIGHT INCREASED [None]
